FAERS Safety Report 11627220 (Version 1)
Quarter: 2015Q4

REPORT INFORMATION
  Report Type: Report from Study
  Country: US (occurrence: US)
  Receive Date: 20151013
  Receipt Date: 20151013
  Transmission Date: 20160304
  Serious: No
  Sender: FDA-Public Use
  Company Number: US-AMGEN-USASL2014102584

PATIENT
  Age: 37 Year
  Sex: Female

DRUGS (18)
  1. TORADOL [Suspect]
     Active Substance: KETOROLAC TROMETHAMINE
     Indication: PRODUCT USED FOR UNKNOWN INDICATION
     Dosage: 30 MG, UNK
     Route: 042
  2. DECADRON [Concomitant]
     Active Substance: DEXAMETHASONE
     Dosage: 20 MG, UNK
  3. HEPARIN [Concomitant]
     Active Substance: HEPARIN SODIUM
     Dosage: 500 UNIT, UNK
  4. NEUPOGEN [Suspect]
     Active Substance: FILGRASTIM
     Indication: PRODUCT USED FOR UNKNOWN INDICATION
     Dosage: 480 MUG, UNK
     Route: 058
  5. PROCRIT [Concomitant]
     Active Substance: ERYTHROPOIETIN
     Dosage: 60000 UNK, UNK
     Route: 042
  6. PROCRIT [Concomitant]
     Active Substance: ERYTHROPOIETIN
     Dosage: 40000 UNK, UNK
     Route: 042
  7. AVASTIN [Suspect]
     Active Substance: BEVACIZUMAB
     Dosage: 200 MG, UNK
     Route: 042
     Dates: start: 20070827
  8. PROCRIT [Concomitant]
     Active Substance: ERYTHROPOIETIN
     Dosage: 80000 UNK, UNK
     Route: 042
  9. CARBOPLATIN. [Concomitant]
     Active Substance: CARBOPLATIN
     Dosage: 236 MG, UNK
     Route: 042
  10. TAGAMET [Concomitant]
     Active Substance: CIMETIDINE
     Dosage: 300 MG, UNK
     Route: 042
  11. AVASTIN [Suspect]
     Active Substance: BEVACIZUMAB
     Dosage: 275 MG, UNK
     Route: 042
     Dates: start: 20070620
  12. AVASTIN [Suspect]
     Active Substance: BEVACIZUMAB
     Indication: LIP AND/OR ORAL CAVITY CANCER
     Dosage: 275 MG, UNK
     Route: 042
     Dates: start: 20070604
  13. PREMARIN [Concomitant]
     Active Substance: ESTROGENS, CONJUGATED
     Dosage: UNK
     Route: 042
  14. AVASTIN [Suspect]
     Active Substance: BEVACIZUMAB
     Dosage: 200 MG, UNK
     Route: 042
     Dates: start: 20070910
  15. BENADRYL [Concomitant]
     Active Substance: DIPHENHYDRAMINE HYDROCHLORIDE
     Dosage: 25 MG, UNK
  16. CARBOPLATIN. [Concomitant]
     Active Substance: CARBOPLATIN
     Dosage: 225 MG, UNK
     Route: 050
  17. TAXOTERE [Concomitant]
     Active Substance: DOCETAXEL
     Dosage: 60 MG, UNK
     Route: 042
  18. PHENERGAN [Concomitant]
     Active Substance: PROMETHAZINE HYDROCHLORIDE
     Dosage: 25 MG, UNK

REACTIONS (10)
  - Dyspepsia [Recovering/Resolving]
  - Weight decreased [Unknown]
  - Off label use [Unknown]
  - Decreased appetite [Unknown]
  - Thrombocytopenia [Unknown]
  - Nausea [Unknown]
  - Eye pain [Unknown]
  - Abdominal pain upper [Recovering/Resolving]
  - Diarrhoea [Recovered/Resolved]
  - Pruritus [Recovering/Resolving]
